FAERS Safety Report 23043269 (Version 1)
Quarter: 2023Q4

REPORT INFORMATION
  Report Type: Spontaneous
  Country: US (occurrence: None)
  Receive Date: 20231009
  Receipt Date: 20231009
  Transmission Date: 20240109
  Serious: Yes (Hospitalization, Other)
  Sender: FDA-Public Use
  Company Number: US-MICRO LABS LIMITED-ML2023-05652

PATIENT
  Age: 15 Year
  Sex: Male
  Weight: 76 kg

DRUGS (1)
  1. BUPROPION [Suspect]
     Active Substance: BUPROPION
     Indication: Suicidal ideation
     Dosage: INGESTING 6000 MG OF BUPROPION EXTENDED-RELEASE TABLETS (79MG/KG) IN A SUICIDE ATTEMPT

REACTIONS (15)
  - Cardiotoxicity [Recovered/Resolved]
  - Cardiogenic shock [Recovered/Resolved]
  - Suicide attempt [Recovered/Resolved]
  - Status epilepticus [Recovered/Resolved]
  - Generalised tonic-clonic seizure [Recovered/Resolved]
  - Electrocardiogram QT prolonged [Recovered/Resolved]
  - Electrocardiogram ST segment depression [Recovered/Resolved]
  - Toxicity to various agents [Recovered/Resolved]
  - Electrocardiogram QRS complex prolonged [Recovered/Resolved]
  - Sinus tachycardia [Recovered/Resolved]
  - Confusional state [Recovered/Resolved]
  - Mydriasis [Recovered/Resolved]
  - Arrhythmia [Recovered/Resolved]
  - Hallucination [Recovered/Resolved]
  - Intentional overdose [Recovered/Resolved]
